FAERS Safety Report 6067665-2 (Version None)
Quarter: 2009Q1

REPORT INFORMATION
  Report Type: 
  Country: None (occurrence: None)
  Receive Date: 20090205
  Receipt Date: 20090127
  Transmission Date: 20090719
  Serious: Yes (Other)
  Sender: FDA-Public Use
  Company Number: US-JNJCH-2009001880

PATIENT
  Age: 36 Year
  Sex: Female

DRUGS (2)
  1. PURELL ORIGINAL [Suspect]
     Indication: INFECTION PROPHYLAXIS
     Dosage: TEXT:UNSPECIFIED
     Route: 061
  2. ALL OTHER THERAPEUTIC PRODUCTS [Suspect]
     Indication: INFECTION PROPHYLAXIS
     Dosage: TEXT:UNSPECIFIED
     Route: 061

REACTIONS (8)
  - APPLICATION SITE BURN [None]
  - DRUG EXPOSURE DURING PREGNANCY [None]
  - EXPIRED DRUG ADMINISTERED [None]
  - FEELING HOT [None]
  - PAIN [None]
  - RASH ERYTHEMATOUS [None]
  - SKIN EXFOLIATION [None]
  - SWELLING [None]
